FAERS Safety Report 10822455 (Version 1)
Quarter: 2015Q1

REPORT INFORMATION
  Report Type: Spontaneous
  Country: US (occurrence: US)
  Receive Date: 20150218
  Receipt Date: 20150218
  Transmission Date: 20150721
  Serious: No
  Sender: FDA-Public Use
  Company Number: US-MYLANLABS-2014S1006922

PATIENT
  Sex: Female
  Weight: 62.58 kg

DRUGS (3)
  1. NIACIN. [Suspect]
     Active Substance: NIACIN
  2. EPINEPHRINE. [Suspect]
     Active Substance: EPINEPHRINE
  3. THYROID [Concomitant]
     Active Substance: LEVOTHYROXINE\LIOTHYRONINE
     Indication: BASEDOW^S DISEASE
     Dosage: UNK

REACTIONS (4)
  - Dyspnoea [Recovered/Resolved]
  - Dizziness [Recovered/Resolved]
  - Drug intolerance [Not Recovered/Not Resolved]
  - Tachycardia [Recovered/Resolved]
